FAERS Safety Report 22257875 (Version 2)
Quarter: 2023Q2

REPORT INFORMATION
  Report Type: Spontaneous
  Country: FR (occurrence: FR)
  Receive Date: 20230427
  Receipt Date: 20230428
  Transmission Date: 20230722
  Serious: Yes (Hospitalization, Other)
  Sender: FDA-Public Use
  Company Number: FR-China IPSEN SC-2023-09434

PATIENT
  Sex: Female

DRUGS (1)
  1. BOTULINUM TOXIN TYPE A [Suspect]
     Active Substance: BOTULINUM TOXIN TYPE A
     Indication: Obesity
     Dosage: INTRAGASTRIC ROUTE
     Route: 065
     Dates: start: 2019, end: 2019

REACTIONS (2)
  - Botulism [Unknown]
  - Off label use [Unknown]

NARRATIVE: CASE EVENT DATE: 20190101
